FAERS Safety Report 4626001-6 (Version None)
Quarter: 2005Q1

REPORT INFORMATION
  Report Type: 
  Country: None (occurrence: None)
  Receive Date: 20050330
  Receipt Date: 20050314
  Transmission Date: 20050727
  Serious: Yes (Other)
  Sender: FDA-Public Use
  Company Number: USA050393099

PATIENT
  Age: 72 Year
  Sex: Male

DRUGS (3)
  1. HUMULIN R [Suspect]
     Indication: DIABETES MELLITUS
     Dosage: UNK
     Route: 065
  2. HUMULIN L [Suspect]
     Indication: DIABETES MELLITUS
     Dosage: UNK
     Route: 065
  3. ALTACE (RAMIPRIL DURA) [Concomitant]

REACTIONS (6)
  - BLOOD GLUCOSE INCREASED [None]
  - INJECTION SITE HYPERTROPHY [None]
  - INJECTION SITE IRRITATION [None]
  - INJECTION SITE PRURITUS [None]
  - INJECTION SITE SWELLING [None]
  - LEUKAEMIA [None]
